FAERS Safety Report 10306329 (Version 2)
Quarter: 2014Q3

REPORT INFORMATION
  Report Type: Report from Study
  Country: JP (occurrence: JP)
  Receive Date: 20140715
  Receipt Date: 20140730
  Transmission Date: 20150326
  Serious: Yes (Death)
  Sender: FDA-Public Use
  Company Number: JP-PFIZER INC-2014195974

PATIENT
  Age: 59 Year
  Sex: Male
  Weight: 52.5 kg

DRUGS (1)
  1. INLYTA [Suspect]
     Active Substance: AXITINIB
     Indication: RENAL CELL CARCINOMA
     Dosage: 5 MG, 2X/DAY
     Route: 048
     Dates: start: 20140325, end: 20140425

REACTIONS (2)
  - Disease progression [Fatal]
  - Renal cell carcinoma [Fatal]

NARRATIVE: CASE EVENT DATE: 20140425
